FAERS Safety Report 13662156 (Version 2)
Quarter: 2017Q3

REPORT INFORMATION
  Report Type: Report from Study
  Country: US (occurrence: US)
  Receive Date: 20170616
  Receipt Date: 20170905
  Transmission Date: 20171127
  Serious: Yes (Other)
  Sender: FDA-Public Use
  Company Number: US-009507513-1706USA007318

PATIENT
  Sex: Female

DRUGS (5)
  1. NADOLOL. [Concomitant]
     Active Substance: NADOLOL
  2. CYCLOPHOSPHAMIDE. [Concomitant]
     Active Substance: CYCLOPHOSPHAMIDE
  3. EMEND [Suspect]
     Active Substance: APREPITANT
     Indication: PROCEDURAL NAUSEA
  4. DOXORUBICIN [Concomitant]
     Active Substance: DOXORUBICIN
  5. EMEND [Suspect]
     Active Substance: APREPITANT
     Indication: PROCEDURAL VOMITING
     Dosage: UNK
     Route: 048
     Dates: start: 201609

REACTIONS (1)
  - Breast cancer [Unknown]
